FAERS Safety Report 19080821 (Version 2)
Quarter: 2021Q2

REPORT INFORMATION
  Report Type: Report from Study
  Country: None (occurrence: BG)
  Receive Date: 20210401
  Receipt Date: 20210406
  Transmission Date: 20210717
  Serious: Yes (Death)
  Sender: FDA-Public Use
  Company Number: BG-ABBVIE-21K-022-3841194-00

PATIENT
  Age: 71 Year
  Sex: Male

DRUGS (1)
  1. HUMIRA [Suspect]
     Active Substance: ADALIMUMAB
     Indication: PROSTATIC SPECIFIC ANTIGEN
     Route: 058
     Dates: start: 202008

REACTIONS (1)
  - Death [Fatal]
